FAERS Safety Report 20496263 (Version 1)
Quarter: 2022Q1

REPORT INFORMATION
  Report Type: Spontaneous
  Country: US (occurrence: US)
  Receive Date: 20220221
  Receipt Date: 20220221
  Transmission Date: 20220424
  Serious: Yes (Other)
  Sender: FDA-Public Use
  Company Number: US-SANOFI-00974319

PATIENT
  Age: 82 Year
  Sex: Female

DRUGS (1)
  1. TROLAMINE SALICYLATE [Suspect]
     Active Substance: TROLAMINE SALICYLATE
     Dosage: UNK

REACTIONS (1)
  - Rheumatoid arthritis [Unknown]
